FAERS Safety Report 8391248-2 (Version None)
Quarter: 2012Q2

REPORT INFORMATION
  Report Type: 
  Country: None (occurrence: None)
  Receive Date: 20120529
  Receipt Date: 20120518
  Transmission Date: 20120825
  Serious: Yes (Hospitalization, Other)
  Sender: FDA-Public Use
  Company Number: US-JNJFOC-20120211220

PATIENT
  Sex: Male

DRUGS (3)
  1. LEVAQUIN [Suspect]
     Indication: NASOPHARYNGITIS
     Route: 048
     Dates: start: 20100101
  2. LEVAQUIN [Suspect]
     Indication: LOWER RESPIRATORY TRACT INFECTION
     Route: 048
     Dates: start: 20100101
  3. LEVAQUIN [Suspect]
     Indication: KIDNEY INFECTION
     Route: 048
     Dates: start: 20100101

REACTIONS (3)
  - SYNOVITIS [None]
  - ROTATOR CUFF SYNDROME [None]
  - TENDON RUPTURE [None]
